FAERS Safety Report 4560672-8 (Version None)
Quarter: 2005Q1

REPORT INFORMATION
  Report Type: 
  Country: None (occurrence: None)
  Receive Date: 20050124
  Receipt Date: 20050124
  Transmission Date: 20050727
  Serious: Yes (Death)
  Sender: FDA-Public Use
  Company Number: None

PATIENT
  Age: 94 Year
  Sex: Male
  Weight: 80 kg

DRUGS (2)
  1. PROPOFOL 10 MG/CC -BAXTER LABS [Suspect]
     Indication: CATARACT OPERATION
     Dosage: 40 MG IV
     Route: 042
     Dates: start: 20050111
  2. LIDOCAINE 0PTHALMIC BLOCK [Concomitant]

REACTIONS (2)
  - PANCREATITIS [None]
  - RESPIRATORY DISTRESS [None]
